FAERS Safety Report 4362479-3 (Version None)
Quarter: 2004Q2

REPORT INFORMATION
  Report Type: 
  Country: None (occurrence: None)
  Receive Date: 20040521
  Receipt Date: 20040511
  Transmission Date: 20050107
  Serious: Yes (Hospitalization)
  Sender: FDA-Public Use
  Company Number: FR-BRISTOL-MYERS SQUIBB COMPANY-12584900

PATIENT
  Age: 64 Year
  Sex: Female

DRUGS (4)
  1. DAFALGAN [Suspect]
     Route: 048
     Dates: start: 20040221, end: 20040222
  2. AMOXICILLIN [Suspect]
     Route: 048
     Dates: start: 20040221, end: 20040222
  3. RHINOFLUIMUCIL [Suspect]
     Route: 048
     Dates: start: 20040221, end: 20040222
  4. HEXALYSE [Suspect]
     Route: 048
     Dates: start: 20040221, end: 20040222

REACTIONS (5)
  - C-REACTIVE PROTEIN INCREASED [None]
  - EXANTHEM [None]
  - NEUTROPHILIA [None]
  - RASH MACULO-PAPULAR [None]
  - RASH PUSTULAR [None]
